FAERS Safety Report 9285943 (Version 1)
Quarter: 2013Q2

REPORT INFORMATION
  Report Type: Spontaneous
  Country: FR (occurrence: FR)
  Receive Date: 20130513
  Receipt Date: 20130513
  Transmission Date: 20140414
  Serious: Yes (Hospitalization)
  Sender: FDA-Public Use
  Company Number: FR-SANOFI-AVENTIS-FRZOL94147

PATIENT
  Age: 3 Year
  Sex: Female
  Weight: 12 kg

DRUGS (1)
  1. STILNOX [Suspect]
     Indication: PRODUCT USED FOR UNKNOWN INDICATION
     Dosage: DOSE INGESTED: 10 OR 20 MG
     Route: 048
     Dates: start: 19940718, end: 19940718

REACTIONS (8)
  - Blood pressure decreased [Recovered/Resolved]
  - Accidental overdose [Unknown]
  - Body temperature decreased [Recovered/Resolved]
  - Respiratory rate increased [Recovered/Resolved]
  - Incoherent [Recovered/Resolved]
  - Dysstasia [Recovered/Resolved]
  - Heart rate increased [Recovered/Resolved]
  - Somnolence [Recovered/Resolved]
